FAERS Safety Report 4772486-4 (Version None)
Quarter: 2005Q3

REPORT INFORMATION
  Report Type: 
  Country: None (occurrence: None)
  Receive Date: 20050916
  Receipt Date: 20050916
  Transmission Date: 20060218
  Serious: Yes (Other)
  Sender: FDA-Public Use
  Company Number: None

PATIENT
  Sex: Female

DRUGS (1)
  1. ZICAM NO DRIP LIQUID NASAL GEL [Suspect]
     Dosage: ONE PUMP IN EACH NOSTRIL

REACTIONS (2)
  - AGEUSIA [None]
  - ANOSMIA [None]
